FAERS Safety Report 7146293-1 (Version None)
Quarter: 2010Q4

REPORT INFORMATION
  Report Type: 
  Country: None (occurrence: None)
  Receive Date: 20101208
  Receipt Date: 20101201
  Transmission Date: 20110411
  Serious: Yes (Hospitalization)
  Sender: FDA-Public Use
  Company Number: US-EISAI INC.-E7389-01068-CLI-US

PATIENT
  Weight: 64 kg

DRUGS (2)
  1. E7389 (BOLD) [Suspect]
     Indication: NON-SMALL CELL LUNG CANCER
     Route: 041
     Dates: start: 20100623
  2. ERLOTINIB [Concomitant]
     Indication: NON-SMALL CELL LUNG CANCER
     Route: 048
     Dates: start: 20100624

REACTIONS (1)
  - GASTROENTERITIS [None]
